FAERS Safety Report 17124829 (Version 1)
Quarter: 2019Q4

REPORT INFORMATION
  Report Type: Spontaneous
  Country: CA (occurrence: CA)
  Receive Date: 20191206
  Receipt Date: 20191206
  Transmission Date: 20200122
  Serious: Yes (Other)
  Sender: FDA-Public Use
  Company Number: CA-SHIRE-CA201941459

PATIENT

DRUGS (4)
  1. HUMAN NORMAL IMMUNOGLOBULIN [Suspect]
     Active Substance: HUMAN IMMUNOGLOBULIN G
     Indication: DERMATOMYOSITIS
     Dosage: UNK
     Route: 042
  2. HYDROXYCHLOROQUINE SULFATE. [Suspect]
     Active Substance: HYDROXYCHLOROQUINE SULFATE
     Indication: DERMATOMYOSITIS
     Route: 065
  3. PREDNISONE. [Suspect]
     Active Substance: PREDNISONE
     Indication: DERMATOMYOSITIS
     Route: 065
  4. METHOTREXATE. [Suspect]
     Active Substance: METHOTREXATE
     Indication: DERMATOMYOSITIS
     Route: 065

REACTIONS (4)
  - Drug exposure before pregnancy [Recovered/Resolved]
  - Maternal exposure during pregnancy [Recovered/Resolved]
  - Premature delivery [Recovered/Resolved]
  - Placental insufficiency [Recovered/Resolved]
